FAERS Safety Report 6572274-2 (Version None)
Quarter: 2010Q1

REPORT INFORMATION
  Report Type: 
  Country: None (occurrence: None)
  Receive Date: 20100205
  Receipt Date: 20100203
  Transmission Date: 20100710
  Serious: Yes (Death)
  Sender: FDA-Public Use
  Company Number: PHEH2010US01635

PATIENT
  Sex: Female

DRUGS (2)
  1. TEKTURNA [Suspect]
     Indication: HYPERTENSION
     Dosage: UNK
     Route: 048
     Dates: start: 20080101
  2. EXFORGE [Suspect]
     Indication: HYPERTENSION
     Dosage: 5/320 MG DAILY
     Route: 048
     Dates: start: 20080101

REACTIONS (1)
  - DEATH [None]
